FAERS Safety Report 22837543 (Version 8)
Quarter: 2023Q4

REPORT INFORMATION
  Report Type: Report from Study
  Country: CN (occurrence: None)
  Receive Date: 20230818
  Receipt Date: 20231031
  Transmission Date: 20240110
  Serious: Yes (Hospitalization)
  Sender: FDA-Public Use
  Company Number: CN-ROCHE-3402392

PATIENT
  Age: 0 Year
  Sex: Male
  Weight: 9.4 kg

DRUGS (5)
  1. ENTRECTINIB [Suspect]
     Active Substance: ENTRECTINIB
     Indication: Sarcoma
     Dosage: START DATE OF MOST RECENT DOSE OF STUDY DRUG PRIOR TO AE IS 09/JUN/2023 AND SAE IS 01/AUG/2023
     Route: 048
     Dates: start: 20230511
  2. COMPOUND TROPICAMIDE [Concomitant]
     Dosage: 4 OTHER
     Route: 047
     Dates: start: 20230607, end: 20230607
  3. CHLORAL HYDRATE [Concomitant]
     Active Substance: CHLORAL HYDRATE
     Dates: start: 20230703, end: 20230703
  4. CHLORAL HYDRATE [Concomitant]
     Active Substance: CHLORAL HYDRATE
     Dates: start: 20230706, end: 20230706
  5. CHLORAL HYDRATE [Concomitant]
     Active Substance: CHLORAL HYDRATE
     Dates: start: 20230824, end: 20230824

REACTIONS (1)
  - Bronchitis [Recovered/Resolved]

NARRATIVE: CASE EVENT DATE: 20230610
